FAERS Safety Report 20169675 (Version 2)
Quarter: 2022Q1

REPORT INFORMATION
  Report Type: Spontaneous
  Country: IR (occurrence: IR)
  Receive Date: 20211210
  Receipt Date: 20220119
  Transmission Date: 20220423
  Serious: Yes (Other)
  Sender: FDA-Public Use
  Company Number: IR-MACLEODS PHARMACEUTICALS US LTD-MAC2021033648

PATIENT

DRUGS (4)
  1. QUETIAPINE [Suspect]
     Active Substance: QUETIAPINE
     Indication: Product used for unknown indication
     Dosage: UNK; EXPOSED AROUND 36 TO 37 WEEKS OF GESTATION
     Route: 065
  2. SERTRALINE [Suspect]
     Active Substance: SERTRALINE HYDROCHLORIDE
     Indication: Product used for unknown indication
     Dosage: UNK; EXPOSED AROUND 36 TO 37 WEEKS OF GESTATION
     Route: 065
  3. CLONAZEPAM [Suspect]
     Active Substance: CLONAZEPAM
     Indication: Product used for unknown indication
     Dosage: UNK; EXPOSED AROUND 36 TO 37 WEEKS OF GESTATION
     Route: 065
  4. RISPERIDONE [Suspect]
     Active Substance: RISPERIDONE
     Indication: Product used for unknown indication
     Dosage: UNK; EXPOSED AROUND 36 TO 37 WEEKS OF GESTATION
     Route: 065

REACTIONS (2)
  - Suicide attempt [Unknown]
  - Maternal exposure during pregnancy [Unknown]
